FAERS Safety Report 10208875 (Version 1)
Quarter: 2014Q2

REPORT INFORMATION
  Report Type: Spontaneous
  Country: US (occurrence: US)
  Receive Date: 20140530
  Receipt Date: 20140530
  Transmission Date: 20141212
  Serious: Yes (Disabling, Other)
  Sender: FDA-Public Use
  Company Number: US-ELI_LILLY_AND_COMPANY-US201405006382

PATIENT
  Sex: Male

DRUGS (4)
  1. HUMALOG 25% LISPRO, 75% NPL [Suspect]
     Indication: TYPE 2 DIABETES MELLITUS
     Dosage: 45 U, QD
     Route: 065
     Dates: start: 1990
  2. FISH OIL [Concomitant]
  3. ATORVASTATIN CALCIUM [Concomitant]
  4. CALCIUM [Concomitant]

REACTIONS (1)
  - Neuropathy peripheral [Not Recovered/Not Resolved]
